FAERS Safety Report 15165344 (Version 1)
Quarter: 2018Q3

REPORT INFORMATION
  Report Type: Spontaneous
  Country: CA (occurrence: CA)
  Receive Date: 20180719
  Receipt Date: 20180719
  Transmission Date: 20181010
  Serious: Yes (Death)
  Sender: FDA-Public Use
  Company Number: CA-PFIZER INC-2017540492

PATIENT
  Age: 63 Year
  Sex: Female

DRUGS (7)
  1. EVEROLIMUS. [Concomitant]
     Active Substance: EVEROLIMUS
     Dosage: UNK
  2. CESAMET [Concomitant]
     Active Substance: NABILONE
     Dosage: 1 MG, 2X/DAY
  3. IBRANCE [Suspect]
     Active Substance: PALBOCICLIB
     Dosage: 100 MG, CYCLIC (DAILY FOR 21 DAYS ON/ 7 DAYS OFF ( 28 DAY CYCLE) REPEAT X 3 MONTHS)
     Route: 048
     Dates: end: 201803
  4. FASLODEX [Suspect]
     Active Substance: FULVESTRANT
     Dosage: 500 MG, CYCLIC (250 MG EACH BUTTOCK ?ON DAY 1, 14, 28 THEN EVERY 28 DAYS)
     Route: 030
  5. DEXAMETHASONE. [Concomitant]
     Active Substance: DEXAMETHASONE
     Dosage: 1?2 MG, 1X/DAY EVERY MORNING
  6. EXEMESTANE. [Concomitant]
     Active Substance: EXEMESTANE
     Dosage: UNK
  7. IBRANCE [Suspect]
     Active Substance: PALBOCICLIB
     Indication: BREAST CANCER METASTATIC
     Dosage: 125MG PO DAILY 21 DAYS ON THEN 7 DAYS OFF
     Route: 048
     Dates: start: 20180124, end: 201803

REACTIONS (6)
  - Nausea [Not Recovered/Not Resolved]
  - Decreased appetite [Not Recovered/Not Resolved]
  - Abdominal pain [Unknown]
  - Abdominal distension [Unknown]
  - Death [Fatal]
  - Gastrointestinal pain [Unknown]

NARRATIVE: CASE EVENT DATE: 2018
